FAERS Safety Report 21216503 (Version 2)
Quarter: 2022Q3

REPORT INFORMATION
  Report Type: Spontaneous
  Country: US (occurrence: US)
  Receive Date: 20220816
  Receipt Date: 20220926
  Transmission Date: 20221026
  Serious: Yes (Hospitalization)
  Sender: FDA-Public Use
  Company Number: US-PFIZER INC-202201057393

PATIENT
  Age: 45 Year
  Sex: Male
  Weight: 158.75 kg

DRUGS (4)
  1. PAXLOVID [Suspect]
     Active Substance: NIRMATRELVIR\RITONAVIR
     Indication: COVID-19 treatment
     Dosage: 3 DF, 2X/DAY (150 (X2)- 100MG 2 PINK + 1 WHITE TWICE DAILY FOR FIVE DAYS)
     Dates: start: 20220802, end: 20220807
  2. MUCINEX D [Concomitant]
     Active Substance: GUAIFENESIN\PSEUDOEPHEDRINE HYDROCHLORIDE
     Indication: Nasopharyngitis
     Dosage: UNK
     Dates: start: 20220801, end: 20220808
  3. PROPRANOLOL [Concomitant]
     Active Substance: PROPRANOLOL HYDROCHLORIDE
     Dosage: UNK
  4. OZEMPIC [Concomitant]
     Active Substance: SEMAGLUTIDE
     Dosage: UNK
     Dates: start: 20220601

REACTIONS (6)
  - Nasopharyngitis [Recovered/Resolved]
  - Sinus congestion [Recovered/Resolved]
  - Rhinorrhoea [Recovered/Resolved]
  - Abdominal pain [Recovered/Resolved]
  - Frequent bowel movements [Recovered/Resolved]
  - Dizziness [Recovered/Resolved]

NARRATIVE: CASE EVENT DATE: 20220813
